FAERS Safety Report 10364135 (Version 2)
Quarter: 2014Q3

REPORT INFORMATION
  Report Type: Report from Study
  Country: SI (occurrence: SI)
  Receive Date: 20140806
  Receipt Date: 20140806
  Transmission Date: 20150326
  Serious: Yes (Other)
  Sender: FDA-Public Use
  Company Number: SI-ROCHE-1204172

PATIENT

DRUGS (2)
  1. CAPECITABINE [Suspect]
     Active Substance: CAPECITABINE
     Indication: ADENOCARCINOMA GASTRIC
     Route: 048
  2. CAPECITABINE [Suspect]
     Active Substance: CAPECITABINE
     Route: 048

REACTIONS (10)
  - Stomatitis [Unknown]
  - Alopecia [Unknown]
  - Nausea [Unknown]
  - White blood cell disorder [Unknown]
  - Palmar-plantar erythrodysaesthesia syndrome [Unknown]
  - Angina pectoris [Unknown]
  - Infection [Unknown]
  - Vomiting [Unknown]
  - Diarrhoea [Unknown]
  - Platelet count abnormal [Unknown]
